FAERS Safety Report 6346171-1 (Version None)
Quarter: 2009Q3

REPORT INFORMATION
  Report Type: 
  Country: None (occurrence: None)
  Receive Date: 20090909
  Receipt Date: 20090902
  Transmission Date: 20100115
  Serious: Yes (Death, Hospitalization, Other)
  Sender: FDA-Public Use
  Company Number: US-TEVA-208075USA

PATIENT
  Sex: Female

DRUGS (1)
  1. METOCLOPRAMIDE [Suspect]
     Indication: GASTRIC DISORDER
     Route: 048
     Dates: start: 20050201, end: 20080101

REACTIONS (11)
  - AKATHISIA [None]
  - APHASIA [None]
  - CONFUSIONAL STATE [None]
  - DYSKINESIA [None]
  - FEEDING DISORDER [None]
  - GAIT DISTURBANCE [None]
  - MEMORY IMPAIRMENT [None]
  - MOTOR DYSFUNCTION [None]
  - MOVEMENT DISORDER [None]
  - TARDIVE DYSKINESIA [None]
  - TRISMUS [None]
